FAERS Safety Report 6034915-8 (Version None)
Quarter: 2009Q1

REPORT INFORMATION
  Report Type: 
  Country: None (occurrence: None)
  Receive Date: 20090108
  Receipt Date: 20090108
  Transmission Date: 20090719
  Serious: Yes (Other)
  Sender: FDA-Public Use
  Company Number: None

PATIENT
  Age: 55 Year
  Sex: Male
  Weight: 97.5234 kg

DRUGS (1)
  1. CIPROFLOXACIN HCL [Suspect]
     Indication: TESTICULAR MASS
     Dosage: 56 1 TABLET TWICE DAI PO
     Route: 048
     Dates: start: 20081011, end: 20081102

REACTIONS (2)
  - FEELING ABNORMAL [None]
  - TENDON DISORDER [None]
